FAERS Safety Report 6093095-3 (Version None)
Quarter: 2009Q1

REPORT INFORMATION
  Report Type: 
  Country: None (occurrence: None)
  Receive Date: 20090226
  Receipt Date: 20090220
  Transmission Date: 20090719
  Serious: Yes (Other)
  Sender: FDA-Public Use
  Company Number: US-BRISTOL-MYERS SQUIBB COMPANY-14486575

PATIENT
  Sex: Male

DRUGS (1)
  1. BARACLUDE [Suspect]
     Dates: start: 20050901

REACTIONS (1)
  - HEPATITIS B DNA INCREASED [None]
